FAERS Safety Report 9758019 (Version 1)
Quarter: 2013Q4

REPORT INFORMATION
  Report Type: Spontaneous
  Country: US (occurrence: US)
  Receive Date: 20131216
  Receipt Date: 20131216
  Transmission Date: 20140711
  Serious: No
  Sender: FDA-Public Use
  Company Number: US-TEVA-411223USA

PATIENT
  Sex: Female
  Weight: 116.68 kg

DRUGS (1)
  1. PARAGARD 380A [Suspect]
     Indication: CONTRACEPTION
     Route: 015
     Dates: end: 20130605

REACTIONS (3)
  - Muscle spasms [Unknown]
  - Back pain [Unknown]
  - Device expulsion [Unknown]
